FAERS Safety Report 11202155 (Version 5)
Quarter: 2015Q4

REPORT INFORMATION
  Report Type: Report from Study
  Country: LB (occurrence: LB)
  Receive Date: 20150619
  Receipt Date: 20151012
  Transmission Date: 20160304
  Serious: Yes (Hospitalization)
  Sender: FDA-Public Use
  Company Number: PHHY2012LB056392

PATIENT
  Age: 75 Year
  Sex: Female

DRUGS (10)
  1. INVOKANA [Concomitant]
     Active Substance: CANAGLIFLOZIN
     Indication: PRODUCT USED FOR UNKNOWN INDICATION
     Dosage: 1 DF, QD (PER DAY)
     Route: 048
     Dates: start: 201508
  2. GLIVEC [Suspect]
     Active Substance: IMATINIB MESYLATE
     Indication: CHRONIC MYELOID LEUKAEMIA
     Dosage: 400 MG, QD (PER DAY)
     Route: 048
     Dates: start: 2004
  3. TRADJENTA [Concomitant]
     Active Substance: LINAGLIPTIN
     Indication: PRODUCT USED FOR UNKNOWN INDICATION
     Dosage: 1 DF, QD (PER 24 HR)
     Route: 048
     Dates: start: 2015
  4. SIOFOR [Concomitant]
     Active Substance: METFORMIN HYDROCHLORIDE
     Indication: PRODUCT USED FOR UNKNOWN INDICATION
     Dosage: 1 DF/12 HOUR (BID)
     Route: 048
     Dates: start: 2006
  5. ADENURIC [Concomitant]
     Active Substance: FEBUXOSTAT
     Indication: PRODUCT USED FOR UNKNOWN INDICATION
     Dosage: 1 DF, QD (PER DAY)
     Route: 048
     Dates: start: 201508
  6. VASTAREL [Concomitant]
     Active Substance: TRIMETAZIDINE DIHYDROCHLORIDE
     Indication: PRODUCT USED FOR UNKNOWN INDICATION
     Dosage: 1 DF, Q12H (PER 12 HOUR)
     Route: 048
     Dates: start: 2004
  7. LASIX [Concomitant]
     Active Substance: FUROSEMIDE
     Indication: PRODUCT USED FOR UNKNOWN INDICATION
     Dosage: 0.5 DF, QD (PER DAY)
     Route: 048
     Dates: start: 2008
  8. AMARYL [Concomitant]
     Active Substance: GLIMEPIRIDE
     Indication: PRODUCT USED FOR UNKNOWN INDICATION
     Dosage: 1 DF, QD
     Route: 048
     Dates: start: 2004
  9. MICARDIS [Concomitant]
     Active Substance: TELMISARTAN
     Indication: PRODUCT USED FOR UNKNOWN INDICATION
     Dosage: 1 DF, QD
     Route: 048
     Dates: start: 2004
  10. GLUCOPHAGE [Concomitant]
     Active Substance: METFORMIN HYDROCHLORIDE
     Indication: PRODUCT USED FOR UNKNOWN INDICATION
     Dosage: 2 DF, QD (PER DAY)
     Route: 048
     Dates: start: 201508

REACTIONS (16)
  - Vomiting [Unknown]
  - Hyperuricaemia [Recovered/Resolved]
  - Muscle spasms [Recovering/Resolving]
  - Thyroid disorder [Recovered/Resolved]
  - Blood creatinine increased [Not Recovered/Not Resolved]
  - Gout [Not Recovered/Not Resolved]
  - Fatigue [Recovering/Resolving]
  - Gastroenteritis [Recovered/Resolved]
  - Blood creatinine increased [Recovered/Resolved]
  - Generalised oedema [Recovering/Resolving]
  - Arthralgia [Not Recovered/Not Resolved]
  - Blood urea increased [Not Recovered/Not Resolved]
  - Vomiting [Recovered/Resolved]
  - Hyperglycaemia [Not Recovered/Not Resolved]
  - Hypoglycaemia [Recovered/Resolved]
  - Diarrhoea [Unknown]

NARRATIVE: CASE EVENT DATE: 201204
